FAERS Safety Report 11464616 (Version 1)
Quarter: 2015Q3

REPORT INFORMATION
  Report Type: Spontaneous
  Country: IE (occurrence: IE)
  Receive Date: 20150906
  Receipt Date: 20150906
  Transmission Date: 20151125
  Serious: Yes (Other)
  Sender: FDA-Public Use
  Company Number: IE-AMGEN-IRLSP2015090389

PATIENT
  Age: 31 Year
  Sex: Male

DRUGS (1)
  1. ARANESP [Suspect]
     Active Substance: DARBEPOETIN ALFA
     Indication: PRODUCT USED FOR UNKNOWN INDICATION
     Dosage: 80 MUG, 2 TIMES/WK
     Route: 065
     Dates: start: 2013

REACTIONS (2)
  - Drug effect decreased [Unknown]
  - Aplasia pure red cell [Unknown]

NARRATIVE: CASE EVENT DATE: 2015
